FAERS Safety Report 10756642 (Version 2)
Quarter: 2015Q2

REPORT INFORMATION
  Report Type: Report from Study
  Country: AU (occurrence: AU)
  Receive Date: 20150202
  Receipt Date: 20150402
  Transmission Date: 20150821
  Serious: Yes (Life-Threatening, Hospitalization)
  Sender: FDA-Public Use
  Company Number: PHHY2015AU010171

PATIENT
  Sex: Male

DRUGS (3)
  1. CLOZARIL [Suspect]
     Active Substance: CLOZAPINE
     Dosage: 12.5 MG
     Route: 048
  2. CLOZARIL [Suspect]
     Active Substance: CLOZAPINE
     Dosage: 400 MG
     Route: 048
  3. CLOZARIL [Suspect]
     Active Substance: CLOZAPINE
     Indication: SCHIZOPHRENIA
     Dosage: 400 OT
     Route: 048
     Dates: start: 20131022

REACTIONS (6)
  - Respiratory arrest [Recovered/Resolved]
  - Mental impairment [Unknown]
  - Salivary hypersecretion [Unknown]
  - Sedation [Recovered/Resolved]
  - Infection [Unknown]
  - Psychiatric symptom [Recovered/Resolved]
